FAERS Safety Report 18119017 (Version 1)
Quarter: 2020Q3

REPORT INFORMATION
  Report Type: Spontaneous
  Country: US (occurrence: US)
  Receive Date: 20200806
  Receipt Date: 20200806
  Transmission Date: 20201103
  Serious: No
  Sender: FDA-Public Use
  Company Number: None

PATIENT
  Age: 26 Year
  Sex: Female
  Weight: 81 kg

DRUGS (1)
  1. BLUMEN ADVANCED HAND SANITIZER CLEAR [Suspect]
     Active Substance: ALCOHOL
     Indication: COVID-19 PROPHYLAXIS
     Dosage: ?          QUANTITY:1 0Z;OTHER FREQUENCY:AS NEEDED;?
     Route: 061
     Dates: start: 20200520, end: 20200806

REACTIONS (2)
  - Recalled product administered [None]
  - Nausea [None]

NARRATIVE: CASE EVENT DATE: 20200806
